FAERS Safety Report 5272774-1 (Version None)
Quarter: 2007Q1

REPORT INFORMATION
  Report Type: 
  Country: None (occurrence: None)
  Receive Date: 20070322
  Receipt Date: 20070316
  Transmission Date: 20070707
  Serious: Yes (Hospitalization)
  Sender: FDA-Public Use
  Company Number: JP-JPN-A200701043

PATIENT
  Age: 1 Day

DRUGS (2)
  1. ZOVIRAX [Suspect]
     Indication: HERPES SIMPLEX
     Dates: start: 20070209, end: 20070213
  2. UTEMERIN [Concomitant]

REACTIONS (5)
  - ADRENAL INSUFFICIENCY NEONATAL [None]
  - DRUG EXPOSURE DURING PREGNANCY [None]
  - HYPERKALAEMIA [None]
  - HYPOCALCAEMIA [None]
  - PREMATURE BABY [None]
